FAERS Safety Report 13135895 (Version 2)
Quarter: 2017Q1

REPORT INFORMATION
  Report Type: Spontaneous
  Country: SA (occurrence: SA)
  Receive Date: 20170120
  Receipt Date: 20170217
  Transmission Date: 20170428
  Serious: Yes (Death, Other)
  Sender: FDA-Public Use
  Company Number: SA-BIOMARINAP-SA-2017-112549

PATIENT
  Age: 1 Year
  Sex: Female
  Weight: 5.5 kg

DRUGS (1)
  1. KUVAN [Suspect]
     Active Substance: SAPROPTERIN DIHYDROCHLORIDE
     Indication: PHENYLKETONURIA
     Dosage: 50 MG/KG, BID
     Route: 048
     Dates: start: 20161019

REACTIONS (4)
  - Hypotonia [Not Recovered/Not Resolved]
  - Pneumonia [Not Recovered/Not Resolved]
  - Death [Fatal]
  - Respiratory failure [Not Recovered/Not Resolved]

NARRATIVE: CASE EVENT DATE: 20170110
